FAERS Safety Report 4285309-7 (Version None)
Quarter: 2004Q1

REPORT INFORMATION
  Report Type: 
  Country: None (occurrence: None)
  Receive Date: 20040204
  Receipt Date: 20040127
  Transmission Date: 20041129
  Serious: Yes (Other)
  Sender: FDA-Public Use
  Company Number: PHBS2004JP01363

PATIENT
  Age: 67 Year
  Sex: Female
  Weight: 55 kg

DRUGS (2)
  1. PARLODEL [Suspect]
     Indication: PARKINSON'S DISEASE
     Dosage: 10 MG/DAY
     Route: 048
     Dates: start: 20001221, end: 20010125
  2. PERGOLIDE MESYLATE [Concomitant]
     Indication: PARKINSON'S DISEASE
     Dosage: 1000 UG, UNK
     Route: 048
     Dates: end: 20001221

REACTIONS (2)
  - LEUKOPENIA [None]
  - THROMBOCYTOPENIA [None]
